FAERS Safety Report 4999952-0 (Version None)
Quarter: 2006Q2

REPORT INFORMATION
  Report Type: 
  Country: None (occurrence: None)
  Receive Date: 20060501
  Receipt Date: 20060331
  Transmission Date: 20061013
  Serious: Yes (Other)
  Sender: FDA-Public Use
  Company Number: 2006047153

PATIENT
  Age: 76 Year
  Sex: Male

DRUGS (5)
  1. DILANTIN [Suspect]
     Indication: EPILEPSY
     Dosage: 350 MG, ORAL
     Route: 048
  2. NEURONTIN [Suspect]
     Indication: AFFECTIVE DISORDER
     Dosage: 200 MG (100 MG, 2 IN 1 D), ORAL
     Route: 048
  3. ACETAMINOPHEN [Suspect]
     Indication: ILL-DEFINED DISORDER
     Dosage: ORAL
     Route: 048
  4. FOLIC ACID [Concomitant]
  5. CALCIUM GLUCONATE [Concomitant]

REACTIONS (7)
  - DRUG INTERACTION [None]
  - DRUG LEVEL INCREASED [None]
  - IRRITABILITY [None]
  - MUSCULAR WEAKNESS [None]
  - PAIN [None]
  - RASH [None]
  - TREMOR [None]
